FAERS Safety Report 18508755 (Version 1)
Quarter: 2020Q4

REPORT INFORMATION
  Report Type: Other
  Country: CA (occurrence: CA)
  Receive Date: 20201117
  Receipt Date: 20201117
  Transmission Date: 20210114
  Serious: Yes (Other)
  Sender: FDA-Public Use
  Company Number: CA-CELLTRION INC.-2020CA031229

PATIENT

DRUGS (12)
  1. METHOTREXATE. [Concomitant]
     Active Substance: METHOTREXATE
  2. DOCUSATE [Concomitant]
     Active Substance: DOCUSATE
  3. ELIQUIS [Concomitant]
     Active Substance: APIXABAN
  4. BISOPROLOL [Concomitant]
     Active Substance: BISOPROLOL
  5. EZETIMIBE. [Concomitant]
     Active Substance: EZETIMIBE
  6. PRAVASTATIN. [Concomitant]
     Active Substance: PRAVASTATIN
  7. NITROGLYCERIN. [Concomitant]
     Active Substance: NITROGLYCERIN
  8. FLOVENT [Concomitant]
     Active Substance: FLUTICASONE PROPIONATE
  9. DESOXIMETASONE. [Concomitant]
     Active Substance: DESOXIMETASONE
  10. FOLIC ACID. [Concomitant]
     Active Substance: FOLIC ACID
  11. RITUXIMAB (UNKNOWN) [Suspect]
     Active Substance: RITUXIMAB
     Indication: RHEUMATOID ARTHRITIS
     Route: 042
  12. PREGABALIN. [Concomitant]
     Active Substance: PREGABALIN

REACTIONS (2)
  - Skin fragility [Not Recovered/Not Resolved]
  - Wound infection [Not Recovered/Not Resolved]
